FAERS Safety Report 19984419 (Version 1)
Quarter: 2021Q4

REPORT INFORMATION
  Report Type: Spontaneous
  Country: IT (occurrence: IT)
  Receive Date: 20211021
  Receipt Date: 20211021
  Transmission Date: 20220303
  Serious: Yes (Life-Threatening, Hospitalization, Other)
  Sender: FDA-Public Use
  Company Number: IT-ASTRAZENECA-2019SF82824

PATIENT
  Age: 42 Year
  Sex: Female

DRUGS (72)
  1. CARBOPLATIN [Suspect]
     Active Substance: CARBOPLATIN
     Indication: Ovarian cancer
     Route: 042
     Dates: start: 20190930, end: 20190930
  2. CARBOPLATIN [Suspect]
     Active Substance: CARBOPLATIN
     Dosage: 587 MG, EVERY 3 WEEKS
     Route: 042
     Dates: start: 20200108, end: 20200108
  3. CARBOPLATIN [Suspect]
     Active Substance: CARBOPLATIN
     Dosage: 587 MG, EVERY 3 WEEKS
     Route: 042
     Dates: start: 20191022, end: 20191022
  4. CARBOPLATIN [Suspect]
     Active Substance: CARBOPLATIN
     Dosage: 587 MG, EVERY 3 WEEKS
     Route: 042
     Dates: start: 20191203, end: 20191203
  5. CARBOPLATIN [Suspect]
     Active Substance: CARBOPLATIN
     Dosage: 587 MG, EVERY 3 WEEKS
     Route: 042
     Dates: start: 20200129, end: 20200129
  6. CARBOPLATIN [Suspect]
     Active Substance: CARBOPLATIN
     Dosage: 587 MG, EVERY 3 WEEKS
     Route: 042
     Dates: start: 20191112, end: 20191112
  7. PACLITAXEL [Suspect]
     Active Substance: PACLITAXEL
     Indication: Ovarian cancer
     Route: 042
     Dates: start: 20200108, end: 20200108
  8. PACLITAXEL [Suspect]
     Active Substance: PACLITAXEL
     Dosage: 280 MG, EVERY 3 WEEKS
     Route: 042
     Dates: start: 20191203, end: 20191203
  9. PACLITAXEL [Suspect]
     Active Substance: PACLITAXEL
     Dosage: 280 MG, EVERY 3 WEEKS
     Route: 042
     Dates: start: 20190930, end: 20190930
  10. PACLITAXEL [Suspect]
     Active Substance: PACLITAXEL
     Dosage: 280 MG, EVERY 3 WEEKS
     Route: 042
     Dates: start: 20191022, end: 20191022
  11. PACLITAXEL [Suspect]
     Active Substance: PACLITAXEL
     Dosage: 280 MG, EVERY 3 WEEKS
     Route: 042
     Dates: start: 20191112, end: 20191112
  12. PACLITAXEL [Suspect]
     Active Substance: PACLITAXEL
     Dosage: 280 MG, EVERY 3 WEEKS
     Route: 042
     Dates: start: 20200129, end: 20200129
  13. OLAPARIB [Suspect]
     Active Substance: OLAPARIB
     Indication: Ovarian cancer
     Dosage: 250 MG; FREQ 12H
     Route: 048
     Dates: start: 20200326, end: 20210331
  14. OLAPARIB [Suspect]
     Active Substance: OLAPARIB
     Dosage: 250 MG; FREQ 12 H
     Route: 048
     Dates: start: 20200401, end: 20200711
  15. OLAPARIB [Suspect]
     Active Substance: OLAPARIB
     Dosage: 250 MG; FREQ: 12 H
     Route: 048
     Dates: start: 20200907
  16. OLAPARIB [Suspect]
     Active Substance: OLAPARIB
     Dosage: 300 MG; FREQ 12H
     Route: 048
     Dates: start: 20200311, end: 20200325
  17. DURVALUMAB [Suspect]
     Active Substance: DURVALUMAB
     Indication: Ovarian cancer
     Dosage: 1120 MG, EVERY 3 WEEKS
     Route: 042
     Dates: start: 20200907, end: 20200907
  18. DURVALUMAB [Suspect]
     Active Substance: DURVALUMAB
     Dosage: 1120 MG, EVERY 3 WEEKS
     Route: 042
     Dates: start: 20200129, end: 20200129
  19. DURVALUMAB [Suspect]
     Active Substance: DURVALUMAB
     Dosage: 1120 MG, EVERY 3 WEEKS
     Route: 042
     Dates: start: 20191022, end: 20191022
  20. DURVALUMAB [Suspect]
     Active Substance: DURVALUMAB
     Dosage: 1120 MG, EVERY 3 WEEKS
     Route: 042
     Dates: start: 20200219, end: 20200219
  21. DURVALUMAB [Suspect]
     Active Substance: DURVALUMAB
     Dosage: 1120 MG, EVERY 3 WEEKS
     Route: 042
     Dates: start: 20210202, end: 20210202
  22. DURVALUMAB [Suspect]
     Active Substance: DURVALUMAB
     Dosage: 1120 MG, EVERY 3 WEEKS
     Route: 042
     Dates: start: 20210407, end: 20210407
  23. DURVALUMAB [Suspect]
     Active Substance: DURVALUMAB
     Dosage: 1120 MG, EVERY 3 WEEKS
     Route: 042
     Dates: start: 20200311, end: 20200311
  24. DURVALUMAB [Suspect]
     Active Substance: DURVALUMAB
     Dosage: 1120 MG, EVERY 3 WEEKS
     Route: 042
     Dates: start: 20200401, end: 20200401
  25. DURVALUMAB [Suspect]
     Active Substance: DURVALUMAB
     Dosage: 1120 MG, EVERY 3 WEEKS
     Route: 042
     Dates: start: 20200422, end: 20200422
  26. DURVALUMAB [Suspect]
     Active Substance: DURVALUMAB
     Dosage: 1120 MG, EVERY 3 WEEKS
     Route: 042
     Dates: start: 20200626, end: 20200626
  27. DURVALUMAB [Suspect]
     Active Substance: DURVALUMAB
     Dosage: 1120 MG, EVERY 3 WEEKS
     Route: 042
     Dates: start: 20200817, end: 20200817
  28. DURVALUMAB [Suspect]
     Active Substance: DURVALUMAB
     Dosage: 1120 MG, EVERY 3 WEEKS
     Route: 042
     Dates: start: 20210316, end: 20210316
  29. DURVALUMAB [Suspect]
     Active Substance: DURVALUMAB
     Dosage: 1120 MG, EVERY 3 WEEKS
     Route: 042
     Dates: start: 20210112, end: 20210112
  30. DURVALUMAB [Suspect]
     Active Substance: DURVALUMAB
     Dosage: 1120 MG, EVERY 3 WEEKS
     Route: 042
     Dates: start: 20210223, end: 20210223
  31. DURVALUMAB [Suspect]
     Active Substance: DURVALUMAB
     Dosage: 1120 MG, EVERY 3 WEEKS
     Route: 042
     Dates: start: 20201130, end: 20201130
  32. DURVALUMAB [Suspect]
     Active Substance: DURVALUMAB
     Dosage: 1120 MG, EVERY 3 WEEKS
     Route: 042
     Dates: start: 20201222, end: 20201222
  33. DURVALUMAB [Suspect]
     Active Substance: DURVALUMAB
     Dosage: 1120 MG, EVERY 3 WEEKS
     Route: 042
     Dates: start: 20200605, end: 20200605
  34. DURVALUMAB [Suspect]
     Active Substance: DURVALUMAB
     Dosage: 1120 MG, EVERY 3 WEEKS
     Route: 042
     Dates: start: 20210518, end: 20210518
  35. DURVALUMAB [Suspect]
     Active Substance: DURVALUMAB
     Dosage: 1120 MG, EVERY 3 WEEKS
     Route: 042
     Dates: start: 20210607, end: 20210607
  36. DURVALUMAB [Suspect]
     Active Substance: DURVALUMAB
     Dosage: 1120 MG, EVERY 3 WEEKS
     Route: 042
     Dates: start: 20191112, end: 20191112
  37. DURVALUMAB [Suspect]
     Active Substance: DURVALUMAB
     Dosage: 1120 MG, EVERY 3 WEEKS
     Route: 042
     Dates: start: 20200515, end: 20200515
  38. DURVALUMAB [Suspect]
     Active Substance: DURVALUMAB
     Dosage: 1120 MG, EVERY 3 WEEKS
     Route: 042
     Dates: start: 20200928, end: 20200928
  39. DURVALUMAB [Suspect]
     Active Substance: DURVALUMAB
     Dosage: 1120 MG, EVERY 3 WEEKS
     Route: 042
     Dates: start: 20201019, end: 20201019
  40. DURVALUMAB [Suspect]
     Active Substance: DURVALUMAB
     Dosage: 1120 MG, EVERY 3 WEEKS
     Route: 042
     Dates: start: 20200108, end: 20200108
  41. DURVALUMAB [Suspect]
     Active Substance: DURVALUMAB
     Dosage: 1120 MG, EVERY 3 WEEKS
     Route: 042
     Dates: start: 20201109, end: 20201109
  42. DURVALUMAB [Suspect]
     Active Substance: DURVALUMAB
     Dosage: 1120 MG, EVERY 3 WEEKS
     Route: 042
     Dates: start: 20191203, end: 20191203
  43. BEVACIZUMAB [Suspect]
     Active Substance: BEVACIZUMAB
     Indication: Ovarian cancer
     Dosage: 975 MG, EVERY 3 WEEKS
     Route: 042
     Dates: start: 20201222, end: 20201222
  44. BEVACIZUMAB [Suspect]
     Active Substance: BEVACIZUMAB
     Dosage: 900 MG, EVERY 3 WEEKS
     Route: 042
     Dates: start: 20201130, end: 20201130
  45. BEVACIZUMAB [Suspect]
     Active Substance: BEVACIZUMAB
     Dosage: 900 MG, EVERY 3 WEEKS
     Route: 042
     Dates: start: 20201019, end: 20201019
  46. BEVACIZUMAB [Suspect]
     Active Substance: BEVACIZUMAB
     Dosage: 840 MG, EVERY 3 WEEKS
     Route: 042
     Dates: start: 20200129, end: 20200129
  47. BEVACIZUMAB [Suspect]
     Active Substance: BEVACIZUMAB
     Dosage: 840 MG, EVERY 3 WEEKS
     Route: 042
     Dates: start: 20200311, end: 20200311
  48. BEVACIZUMAB [Suspect]
     Active Substance: BEVACIZUMAB
     Dosage: 840 MG, EVERY 3 WEEKS
     Route: 042
     Dates: start: 20200605, end: 20200605
  49. BEVACIZUMAB [Suspect]
     Active Substance: BEVACIZUMAB
     Dosage: 840 MG, EVERY 3 WEEKS
     Route: 042
     Dates: start: 20200401, end: 20200401
  50. BEVACIZUMAB [Suspect]
     Active Substance: BEVACIZUMAB
     Dosage: 975 MG, EVERY 3 WEEKS
     Route: 042
     Dates: start: 20210223, end: 20210223
  51. BEVACIZUMAB [Suspect]
     Active Substance: BEVACIZUMAB
     Dosage: 840 MG, EVERY 3 WEEKS
     Route: 042
     Dates: start: 20191022, end: 20191022
  52. BEVACIZUMAB [Suspect]
     Active Substance: BEVACIZUMAB
     Dosage: 975 MG, EVERY 3 WEEKS
     Route: 042
     Dates: start: 20210202, end: 20210202
  53. BEVACIZUMAB [Suspect]
     Active Substance: BEVACIZUMAB
     Dosage: 840 MG, EVERY 3 WEEKS
     Route: 042
     Dates: start: 20200422, end: 20200422
  54. BEVACIZUMAB [Suspect]
     Active Substance: BEVACIZUMAB
     Dosage: 840 MG, EVERY 3 WEEKS
     Route: 042
     Dates: start: 20200108, end: 20200108
  55. BEVACIZUMAB [Suspect]
     Active Substance: BEVACIZUMAB
     Dosage: 855 MG, EVERY 3 WEEKS
     Route: 042
     Dates: start: 20200907, end: 20200907
  56. BEVACIZUMAB [Suspect]
     Active Substance: BEVACIZUMAB
     Dosage: 840 MG, EVERY 3 WEEKS
     Route: 042
     Dates: start: 20191203, end: 20191203
  57. BEVACIZUMAB [Suspect]
     Active Substance: BEVACIZUMAB
     Dosage: 855 MG, EVERY 3 WEEKS
     Route: 042
     Dates: start: 20200928, end: 20200928
  58. BEVACIZUMAB [Suspect]
     Active Substance: BEVACIZUMAB
     Dosage: 990 MG, EVERY 3 WEEKS
     Route: 042
     Dates: start: 20210315, end: 20210315
  59. BEVACIZUMAB [Suspect]
     Active Substance: BEVACIZUMAB
     Dosage: 975 MG, EVERY 3 WEEKS
     Route: 042
     Dates: start: 20210112, end: 20210112
  60. BEVACIZUMAB [Suspect]
     Active Substance: BEVACIZUMAB
     Dosage: 840 MG, EVERY 3 WEEKS
     Route: 042
     Dates: start: 20191112, end: 20191112
  61. BEVACIZUMAB [Suspect]
     Active Substance: BEVACIZUMAB
     Dosage: 840 MG, EVERY 3 WEEKS
     Route: 042
     Dates: start: 20200219, end: 20200219
  62. BEVACIZUMAB [Suspect]
     Active Substance: BEVACIZUMAB
     Dosage: 900 MG, EVERY 3 WEEKS
     Route: 042
     Dates: start: 20201109, end: 20201109
  63. BEVACIZUMAB [Suspect]
     Active Substance: BEVACIZUMAB
     Dosage: 1020 MG, EVERY 3 WEEKS
     Route: 042
     Dates: start: 20210407, end: 20210407
  64. BEVACIZUMAB [Suspect]
     Active Substance: BEVACIZUMAB
     Dosage: 840 MG, EVERY 3 WEEKS
     Route: 042
     Dates: start: 20200515, end: 20200515
  65. TRIMETON [Concomitant]
     Active Substance: CHLORPHENIRAMINE MALEATE
     Indication: Premedication
     Dosage: 10 MG, 1X/DAY
     Route: 042
     Dates: start: 20190930, end: 20200515
  66. LEVOTHYROXINE SODIUM [Concomitant]
     Active Substance: LEVOTHYROXINE SODIUM
     Indication: Hypothyroidism
     Dosage: UNK
     Route: 048
  67. CIPROFLOXACIN [Concomitant]
     Active Substance: CIPROFLOXACIN
     Indication: Leukopenia
     Dosage: 1000 MG, 1X/DAY
     Route: 048
     Dates: start: 20191127, end: 20191202
  68. CIPROFLOXACIN [Concomitant]
     Active Substance: CIPROFLOXACIN
     Indication: Neutropenia
  69. AKYNZEO [Concomitant]
     Active Substance: NETUPITANT\PALONOSETRON HYDROCHLORIDE
     Indication: Premedication
     Dosage: 300 MG, 1X/DAY
     Route: 048
     Dates: start: 20190930, end: 20200129
  70. METHYLPREDNISOLONE [Concomitant]
     Active Substance: METHYLPREDNISOLONE
     Indication: Premedication
     Dosage: 40 MG, 1X/DAY
     Route: 042
     Dates: start: 20190930, end: 20200129
  71. PEGFILGRASTIM [Concomitant]
     Active Substance: PEGFILGRASTIM
     Indication: Neutropenia
     Dosage: 6 MG, 1X/DAY
     Route: 058
     Dates: start: 20191205, end: 20191205
  72. DIFLUCAN [Concomitant]
     Active Substance: FLUCONAZOLE
     Indication: Neutropenia
     Dosage: 100 MG, 1X/DAY
     Route: 048
     Dates: start: 20191127, end: 20191202

REACTIONS (1)
  - Febrile neutropenia [Recovered/Resolved]

NARRATIVE: CASE EVENT DATE: 20191208
